FAERS Safety Report 4518719-0 (Version None)
Quarter: 2004Q4

REPORT INFORMATION
  Report Type: 
  Country: None (occurrence: None)
  Receive Date: 20041201
  Receipt Date: 20041115
  Transmission Date: 20050328
  Serious: Yes (Hospitalization)
  Sender: FDA-Public Use
  Company Number: 205551

PATIENT
  Age: 34 Year
  Sex: Female

DRUGS (2)
  1. AVONEX [Suspect]
     Indication: MULTIPLE SCLEROSIS
     Dosage: QW; IM
     Route: 030
     Dates: start: 19970101
  2. NOVANTRONE [Concomitant]

REACTIONS (3)
  - CARDIAC FAILURE [None]
  - CARDIOGENIC SHOCK [None]
  - EJECTION FRACTION DECREASED [None]
